FAERS Safety Report 10448666 (Version 14)
Quarter: 2015Q4

REPORT INFORMATION
  Report Type: Report from Study
  Country: CA (occurrence: CA)
  Receive Date: 20140912
  Receipt Date: 20151215
  Transmission Date: 20160304
  Serious: Yes (Hospitalization, Other)
  Sender: FDA-Public Use
  Company Number: CA-ROCHE-1376532

PATIENT
  Age: 59 Year
  Sex: Female
  Weight: 57 kg

DRUGS (13)
  1. PERJETA [Suspect]
     Active Substance: PERTUZUMAB
     Indication: HER-2 POSITIVE BREAST CANCER
     Route: 042
     Dates: start: 20140401
  2. PERJETA [Suspect]
     Active Substance: PERTUZUMAB
     Route: 042
     Dates: start: 20140422
  3. HERCEPTIN [Suspect]
     Active Substance: TRASTUZUMAB
     Indication: PRODUCT USED FOR UNKNOWN INDICATION
     Route: 042
     Dates: start: 2006, end: 2007
  4. TAXOL [Suspect]
     Active Substance: PACLITAXEL
     Route: 065
  5. FASLODEX [Concomitant]
     Active Substance: FULVESTRANT
     Route: 065
  6. ZOPICLONE [Concomitant]
     Active Substance: ZOPICLONE
     Dosage: AS NEEDED
     Route: 065
  7. HERCEPTIN [Suspect]
     Active Substance: TRASTUZUMAB
     Route: 042
  8. CURCUMIN [Concomitant]
     Active Substance: CURCUMIN
     Route: 065
  9. TAXOL [Suspect]
     Active Substance: PACLITAXEL
     Indication: PRODUCT USED FOR UNKNOWN INDICATION
     Dosage: MEDICATION STOPPED ON UNKNOWN DATE
     Route: 065
     Dates: start: 2006
  10. ALTACE [Concomitant]
     Active Substance: RAMIPRIL
     Route: 065
  11. TAMOXIFEN [Concomitant]
     Active Substance: TAMOXIFEN
     Route: 065
  12. XGEVA [Concomitant]
     Active Substance: DENOSUMAB
     Route: 065
  13. ELAVIL [Concomitant]
     Active Substance: AMITRIPTYLINE HYDROCHLORIDE
     Route: 065

REACTIONS (21)
  - Hypertension [Unknown]
  - Infusion related reaction [Unknown]
  - Body temperature decreased [Unknown]
  - Headache [Not Recovered/Not Resolved]
  - Weight decreased [Unknown]
  - Weight increased [Unknown]
  - Device related infection [Recovered/Resolved]
  - Nausea [Recovered/Resolved]
  - Paraesthesia [Not Recovered/Not Resolved]
  - Catheter site erythema [Unknown]
  - Hypotension [Unknown]
  - Poor venous access [Not Recovered/Not Resolved]
  - Oropharyngeal pain [Not Recovered/Not Resolved]
  - Nasopharyngitis [Recovering/Resolving]
  - Cough [Recovering/Resolving]
  - Pain in extremity [Recovered/Resolved]
  - Drug dose omission [Unknown]
  - Gastric infection [Unknown]
  - Sleep disorder [Unknown]
  - Fatigue [Unknown]
  - Body temperature decreased [Unknown]

NARRATIVE: CASE EVENT DATE: 201404
